FAERS Safety Report 13499444 (Version 1)
Quarter: 2017Q2

REPORT INFORMATION
  Report Type: Spontaneous
  Country: US (occurrence: US)
  Receive Date: 20170501
  Receipt Date: 20170501
  Transmission Date: 20170830
  Serious: Yes (Other)
  Sender: FDA-Public Use
  Company Number: US-AMGEN-USASP2017063556

PATIENT
  Age: 69 Year
  Sex: Female

DRUGS (6)
  1. ENBREL [Suspect]
     Active Substance: ETANERCEPT
     Dosage: 50 MG, QWK
     Route: 065
  2. VITAMIN C [Concomitant]
     Active Substance: ASCORBIC ACID
     Dosage: UNK
  3. ACIPHEX [Concomitant]
     Active Substance: RABEPRAZOLE SODIUM
     Indication: ABDOMINAL DISCOMFORT
  4. VOLTAREN [Suspect]
     Active Substance: DICLOFENAC SODIUM
     Indication: PRODUCT USED FOR UNKNOWN INDICATION
     Dosage: UNK
     Route: 065
  5. ENBREL [Suspect]
     Active Substance: ETANERCEPT
     Indication: RHEUMATOID ARTHRITIS
     Dosage: 50 MG, QWK
     Route: 065
  6. PREDNISONE. [Suspect]
     Active Substance: PREDNISONE
     Indication: PRODUCT USED FOR UNKNOWN INDICATION
     Dosage: UNK
     Route: 065

REACTIONS (29)
  - Wrong technique in product usage process [Unknown]
  - Musculoskeletal pain [Unknown]
  - Intervertebral disc protrusion [Unknown]
  - Spinal disorder [Unknown]
  - Fibromyalgia [Unknown]
  - Hypersensitivity [Unknown]
  - Spider vein [Unknown]
  - Stress [Unknown]
  - Incorrect product storage [Unknown]
  - Pain in extremity [Unknown]
  - Osteoporosis [Unknown]
  - Joint swelling [Unknown]
  - Tooth loss [Unknown]
  - Osteoarthritis [Unknown]
  - Peripheral swelling [Unknown]
  - Weight decreased [Unknown]
  - Gingivitis [Recovered/Resolved]
  - Sjogren^s syndrome [Unknown]
  - Neck pain [Unknown]
  - Fall [Unknown]
  - Intestinal perforation [Unknown]
  - Cardiac operation [Unknown]
  - Sinusitis [Unknown]
  - Injection site pain [Unknown]
  - Arthrodesis [Unknown]
  - Oral discomfort [Unknown]
  - Sleep disorder due to a general medical condition [Unknown]
  - Hepatic enzyme increased [Unknown]
  - Cataract [Unknown]

NARRATIVE: CASE EVENT DATE: 201510
